FAERS Safety Report 15021204 (Version 1)
Quarter: 2018Q2

REPORT INFORMATION
  Report Type: Spontaneous
  Country: US (occurrence: US)
  Receive Date: 20180601
  Receipt Date: 20180601
  Transmission Date: 20180711
  Serious: Yes (Other)
  Sender: FDA-Public Use
  Company Number: None

PATIENT
  Age: 36 Year
  Sex: Male
  Weight: 63 kg

DRUGS (2)
  1. MESALAMINE DR 1.2 GM TABLET [Suspect]
     Active Substance: MESALAMINE
     Indication: COLITIS ULCERATIVE
     Dosage: ?          QUANTITY:2 DF DOSAGE FORM;?
     Route: 048
     Dates: start: 20180531, end: 20180531
  2. VSL #3 PROBIOTICS [Concomitant]

REACTIONS (5)
  - Muscle spasms [None]
  - Diarrhoea [None]
  - Colitis ulcerative [None]
  - Haematochezia [None]
  - Faeces soft [None]

NARRATIVE: CASE EVENT DATE: 20180531
